FAERS Safety Report 6066891-6 (Version None)
Quarter: 2009Q1

REPORT INFORMATION
  Report Type: 
  Country: None (occurrence: None)
  Receive Date: 20090205
  Receipt Date: 20080731
  Transmission Date: 20090719
  Serious: No
  Sender: FDA-Public Use
  Company Number: US-ABBOTT-08P-163-0467666-00

PATIENT
  Sex: Male

DRUGS (3)
  1. VICODIN [Suspect]
     Indication: POST HERPETIC NEURALGIA
  2. OXYCET [Concomitant]
     Indication: POST HERPETIC NEURALGIA
  3. GABAPENTIN [Concomitant]
     Indication: POST HERPETIC NEURALGIA

REACTIONS (1)
  - DRUG INEFFECTIVE [None]
